FAERS Safety Report 7226555-X (Version None)
Quarter: 2011Q1

REPORT INFORMATION
  Report Type: 
  Country: None (occurrence: None)
  Receive Date: 20110114
  Receipt Date: 20110106
  Transmission Date: 20110831
  Serious: Yes (Other)
  Sender: FDA-Public Use
  Company Number: CA-JNJFOC-20110102059

PATIENT
  Age: 58 Year
  Sex: Female
  Weight: 72.7 kg

DRUGS (8)
  1. IMURAN [Concomitant]
     Route: 048
  2. CIPRO [Concomitant]
     Dosage: DOSE: 2 TABS DAILY
     Route: 048
  3. ENTOCORT EC [Concomitant]
     Dosage: DOSE: 3 TABS DAILY
     Route: 048
  4. LOVAN [Concomitant]
  5. REMICADE [Suspect]
     Indication: CROHN'S DISEASE
     Dosage: LOADING DOSE 0,2,6
     Route: 042
  6. PENTASA [Concomitant]
     Dosage: DOSE: 8 TABS DAILY
     Route: 048
  7. LOMOTIL [Concomitant]
  8. REMICADE [Suspect]
     Dosage: LOADING DOSE 0,2,6
     Route: 042

REACTIONS (1)
  - SALIVARY GLAND CALCULUS [None]
